FAERS Safety Report 4414003-4 (Version None)
Quarter: 2004Q3

REPORT INFORMATION
  Report Type: 
  Country: None (occurrence: None)
  Receive Date: 20040728
  Receipt Date: 20040623
  Transmission Date: 20050211
  Serious: Yes (Other)
  Sender: FDA-Public Use
  Company Number: JP-JNJFOC-20040603655

PATIENT
  Age: 45 Year
  Sex: Male

DRUGS (14)
  1. REMICADE [Suspect]
     Indication: RHEUMATOID ARTHRITIS
     Dosage: 3 MG/KG, INTRAVENOUS
     Route: 042
     Dates: start: 20040305
  2. ISONIAZID TAB [Concomitant]
  3. RIFADIN (CAPSULES) RIFAMPICIN [Concomitant]
  4. EBUTOL (TABLETS) ETHAMBUTOL [Concomitant]
  5. PYDOXAL (PYRIDOXAL PHOSPHATE) TABLETS [Concomitant]
  6. MEDROL [Concomitant]
  7. RHEUMATREX [Concomitant]
  8. VOLTAREN (DICLOFENAC SODIUM) CAPSULES [Concomitant]
  9. SELBEX (TEPRENONE) CAPSULES [Concomitant]
  10. DICLOFENAC SODIUM [Concomitant]
  11. METHOTREXATE [Concomitant]
  12. METHYLPREDNISOLONE [Concomitant]
  13. PYRIDOXAL PHOSPHATE [Concomitant]
  14. TEPRENONE [Concomitant]

REACTIONS (1)
  - PULMONARY TUBERCULOSIS [None]
